FAERS Safety Report 6243294-2 (Version None)
Quarter: 2009Q2

REPORT INFORMATION
  Report Type: 
  Country: None (occurrence: None)
  Receive Date: 20090622
  Receipt Date: 20090610
  Transmission Date: 20091009
  Serious: Yes (Death, Disabling, Other)
  Sender: FDA-Public Use
  Company Number: 2008-03191

PATIENT
  Age: 81 Year
  Sex: Male
  Weight: 52 kg

DRUGS (9)
  1. VELCADE [Suspect]
     Indication: MULTIPLE MYELOMA
     Dosage: 2 MG, INTRAVENOUS
     Route: 042
     Dates: start: 20080812, end: 20080819
  2. EPADEL (ETHYL ICOSAPENTATE) [Concomitant]
  3. URSODIOL [Concomitant]
  4. GLYCYRON (AMINOACETIC ACID, DL-METHIONINE, GLYCYRRHIZIC ACID) [Concomitant]
  5. NORVASC [Concomitant]
  6. PRAVASTATIN [Concomitant]
  7. ALESION (EPINASTINE HYDROCHLORIDE) [Concomitant]
  8. DECADRON [Concomitant]
  9. PREDNISOLONE [Concomitant]

REACTIONS (13)
  - BACTERIA SPUTUM IDENTIFIED [None]
  - BLOOD PRESSURE DECREASED [None]
  - DYSSTASIA [None]
  - HAEMORRHAGE SUBCUTANEOUS [None]
  - INFECTION [None]
  - MUSCULAR WEAKNESS [None]
  - MYALGIA [None]
  - PLATELET COUNT DECREASED [None]
  - PLEURAL EFFUSION [None]
  - PNEUMONIA [None]
  - RESPIRATORY FAILURE [None]
  - STAPHYLOCOCCAL INFECTION [None]
  - URINARY RETENTION [None]
